FAERS Safety Report 8100087-9 (Version None)
Quarter: 2012Q1

REPORT INFORMATION
  Report Type: 
  Country: None (occurrence: None)
  Receive Date: 20120129
  Receipt Date: 20111102
  Transmission Date: 20120608
  Serious: No
  Sender: FDA-Public Use
  Company Number: US-ABBOTT-11P-163-0871031-00

PATIENT
  Sex: Female
  Weight: 81.72 kg

DRUGS (13)
  1. PREDNISONE TAB [Concomitant]
     Indication: PRODUCT USED FOR UNKNOWN INDICATION
  2. METHOTREXATE [Concomitant]
     Indication: PRODUCT USED FOR UNKNOWN INDICATION
     Route: 048
  3. PILOCARPINE HCL [Concomitant]
     Indication: PRODUCT USED FOR UNKNOWN INDICATION
  4. HUMIRA [Suspect]
     Indication: RHEUMATOID ARTHRITIS
  5. CRESTOR [Concomitant]
     Indication: PRODUCT USED FOR UNKNOWN INDICATION
  6. AMBIEN [Concomitant]
     Indication: PRODUCT USED FOR UNKNOWN INDICATION
  7. VOLTRAN [Concomitant]
     Indication: PRODUCT USED FOR UNKNOWN INDICATION
     Dosage: FOUR TIMES A DAY AS NEEDED
  8. SKELAXIN [Concomitant]
     Indication: MUSCLE RELAXANT THERAPY
     Dosage: THREE TIMES A DAY AS NEEDED
  9. LYRICA [Concomitant]
     Indication: FIBROMYALGIA
  10. CELEBREX [Concomitant]
     Indication: PRODUCT USED FOR UNKNOWN INDICATION
  11. UPROPAMINE (SP) [Concomitant]
     Indication: DEPRESSION
  12. ATENOLOL [Concomitant]
     Indication: BLOOD PRESSURE
  13. LEXAPRO [Concomitant]
     Indication: DEPRESSION

REACTIONS (4)
  - EAR DISCOMFORT [None]
  - COUGH [None]
  - SINUSITIS [None]
  - PULMONARY CONGESTION [None]
